FAERS Safety Report 9293013 (Version 2)
Quarter: 2014Q1

REPORT INFORMATION
  Report Type: Spontaneous
  Country: US (occurrence: None)
  Receive Date: 20121212
  Receipt Date: 20130314
  Transmission Date: 20141002
  Serious: No
  Sender: FDA-Public Use
  Company Number: 1210USA010225

PATIENT
  Age: 56 Year
  Sex: Female
  Weight: 87.5 kg

DRUGS (5)
  1. VICTRELIS [Suspect]
     Indication: CHRONIC HEPATITIS C
     Dosage: 4 DF (TOTAL 800 MG), TID, ORAL
     Route: 048
     Dates: start: 20121020
  2. PEGASYS (PEGINTERFERON ALFA-2A) [Suspect]
     Indication: CHRONIC HEPATITIS C
     Dates: start: 20120914
  3. RIBASPHERE [Suspect]
     Indication: CHRONIC HEPATITIS C
     Dates: start: 20120914
  4. RIBAPAK [Suspect]
     Indication: CHRONIC HEPATITIS C
     Dates: start: 20120914
  5. CLARITHROMYCIN (CLARITHROMYCIN) [Concomitant]

REACTIONS (7)
  - Abdominal discomfort [None]
  - Onychoclasis [None]
  - Nail disorder [None]
  - Nail bed bleeding [None]
  - Dysgeusia [None]
  - Anaemia [None]
  - Nausea [None]
